FAERS Safety Report 4401111-7 (Version None)
Quarter: 2004Q3

REPORT INFORMATION
  Report Type: 
  Country: None (occurrence: None)
  Receive Date: 20040907
  Receipt Date: 20031104
  Transmission Date: 20050211
  Serious: Yes (Hospitalization)
  Sender: FDA-Public Use
  Company Number: US-BRISTOL-MYERS SQUIBB COMPANY-12428553

PATIENT
  Age: 84 Year
  Sex: Male

DRUGS (2)
  1. AVAPRO [Suspect]
     Indication: AORTIC VALVE REPLACEMENT
     Route: 048
     Dates: end: 20031001
  2. COUMADIN [Suspect]
     Indication: AORTIC VALVE REPLACEMENT
     Dates: end: 20031001

REACTIONS (3)
  - INTERNATIONAL NORMALISED RATIO INCREASED [None]
  - SUBARACHNOID HAEMORRHAGE [None]
  - THROMBOCYTOPENIA [None]
